FAERS Safety Report 4962015-4 (Version None)
Quarter: 2006Q2

REPORT INFORMATION
  Report Type: 
  Country: None (occurrence: None)
  Receive Date: 20060404
  Receipt Date: 20051102
  Transmission Date: 20061013
  Serious: Yes (Hospitalization, Other)
  Sender: FDA-Public Use
  Company Number: US-MERCK-0511USA00636

PATIENT
  Age: 46 Year
  Sex: Male
  Weight: 82 kg

DRUGS (43)
  1. VIOXX [Suspect]
     Indication: ARTHRITIS
     Route: 048
     Dates: start: 20000331, end: 20040101
  2. BEXTRA [Concomitant]
     Route: 065
     Dates: start: 20041121, end: 20041219
  3. CELEBREX [Concomitant]
     Route: 065
     Dates: start: 20041005
  4. NEURONTIN [Concomitant]
     Route: 065
     Dates: start: 20020810, end: 20051021
  5. ACETAMINOPHEN AND PROPOXYPHENE NAPSYLATE [Concomitant]
     Route: 065
     Dates: start: 20031126
  6. NAPROXEN [Concomitant]
     Route: 065
     Dates: start: 20050629
  7. MEPERIDINE HYDROCHLORIDE [Concomitant]
     Route: 065
     Dates: start: 20050121
  8. TYLENOL ARTHRITIS EXTENDED RELIEF [Concomitant]
     Route: 065
  9. ALBUTEROL [Concomitant]
     Route: 065
  10. ALPHAGAN [Concomitant]
     Route: 065
  11. ALTACE [Concomitant]
     Indication: HYPERTENSION
     Route: 065
     Dates: start: 20030212, end: 20051017
  12. AVANDIA [Concomitant]
     Indication: DIABETES MELLITUS
     Route: 065
  13. FLUOROMETHOLONE OPHTHALMIC SUSPENSION USP [Concomitant]
     Route: 065
  14. GLYBURIDE [Concomitant]
     Indication: DIABETES MELLITUS
     Route: 065
  15. HUMULIN [Concomitant]
     Indication: DIABETES MELLITUS
     Route: 065
  16. ADVAIR DISKUS 100/50 [Concomitant]
     Route: 065
  17. AMOXICILLIN [Concomitant]
     Route: 065
  18. CHROMAGEN CAPSULES [Concomitant]
     Route: 065
  19. CIPROFLOXACIN [Concomitant]
     Route: 065
  20. ERYTHROMYCIN [Concomitant]
     Route: 065
  21. HYZAAR [Concomitant]
     Indication: HYPERTENSION
     Route: 065
     Dates: start: 20020923, end: 20030123
  22. LEVOTHYROXINE SODIUM [Concomitant]
     Route: 065
  23. LIPITOR [Concomitant]
     Indication: BLOOD CHOLESTEROL
     Route: 065
     Dates: start: 20020620
  24. METOCLOPRAMIDE [Concomitant]
     Indication: GASTROOESOPHAGEAL REFLUX DISEASE
     Route: 065
  25. NEOPOLYDEX [Concomitant]
     Indication: ANTIINFLAMMATORY THERAPY
     Route: 065
  26. NORVASC [Concomitant]
     Indication: HYPERTENSION
     Route: 065
     Dates: start: 20040904, end: 20051014
  27. OMEPRAZOLE [Concomitant]
     Indication: GASTROOESOPHAGEAL REFLUX DISEASE
     Route: 065
  28. SUCRALFATE [Concomitant]
     Indication: GASTROOESOPHAGEAL REFLUX DISEASE
     Route: 065
  29. SYNTHROID [Concomitant]
     Route: 065
  30. TOBRADEX [Concomitant]
     Route: 065
  31. HYDROCHLOROTHIAZIDE AND TRIAMTERENE [Concomitant]
     Indication: POLYURIA
     Route: 065
     Dates: start: 20040808, end: 20050420
  32. XALATAN [Concomitant]
     Indication: GLAUCOMA
     Route: 065
  33. ZOLOFT [Concomitant]
     Indication: ANTIDEPRESSANT THERAPY
     Route: 065
     Dates: start: 20020620, end: 20050317
  34. ZYPREXA [Concomitant]
     Route: 065
     Dates: start: 20020620, end: 20020810
  35. FLOMAX (MORNIFLUMATE) [Concomitant]
     Indication: BENIGN PROSTATIC HYPERPLASIA
     Route: 065
  36. HYDROCHLOROTHIAZIDE [Concomitant]
     Indication: POLYURIA
     Route: 065
  37. LEVAQUIN [Concomitant]
     Route: 065
  38. MEPERIDINE HYDROCHLORIDE [Concomitant]
     Indication: PAIN
     Route: 065
  39. MUPIROCIN [Concomitant]
     Route: 065
  40. [THERAPY UNSPECIFIED] [Concomitant]
     Route: 065
  41. PROMETHAZINE [Concomitant]
     Indication: NAUSEA
     Route: 065
  42. PROMETHAZINE [Concomitant]
     Indication: VOMITING
     Route: 065
  43. SMZ-TMP [Concomitant]
     Route: 065

REACTIONS (12)
  - BLINDNESS UNILATERAL [None]
  - CARDIAC FAILURE CONGESTIVE [None]
  - CAROTID ARTERY STENOSIS [None]
  - CEREBROVASCULAR ACCIDENT [None]
  - CHEST PAIN [None]
  - DEPRESSION [None]
  - HEMIPARESIS [None]
  - HYPOTHYROIDISM [None]
  - PERIPHERAL VASCULAR DISORDER [None]
  - RENAL DISORDER [None]
  - SLEEP APNOEA SYNDROME [None]
  - SWELLING [None]
